FAERS Safety Report 9671325 (Version 4)
Quarter: 2013Q4

REPORT INFORMATION
  Report Type: Spontaneous
  Country: FR (occurrence: FR)
  Receive Date: 20131106
  Receipt Date: 20131126
  Transmission Date: 20140711
  Serious: Yes (Disabling)
  Sender: FDA-Public Use
  Company Number: FR-JNJFOC-20131010320

PATIENT
  Age: 32 Year
  Sex: Female
  Weight: 59 kg

DRUGS (5)
  1. SIMPONI [Suspect]
     Indication: ANKYLOSING SPONDYLITIS
     Route: 058
     Dates: start: 20130311
  2. PROPANOL [Concomitant]
     Route: 065
  3. KETOPROFEN [Concomitant]
     Indication: PAIN
     Route: 048
     Dates: start: 20121115
  4. SKENAN [Concomitant]
     Route: 065
  5. RELPAX [Concomitant]
     Indication: MIGRAINE
     Route: 065
     Dates: start: 20100805

REACTIONS (3)
  - Pruritus [Recovering/Resolving]
  - Underdose [Unknown]
  - Device malfunction [Unknown]
